FAERS Safety Report 4490514-0 (Version None)
Quarter: 2004Q4

REPORT INFORMATION
  Report Type: 
  Country: None (occurrence: None)
  Receive Date: 20041101
  Receipt Date: 20041018
  Transmission Date: 20050328
  Serious: No
  Sender: FDA-Public Use
  Company Number: 2004GB02484

PATIENT
  Age: 53 Year
  Sex: Male

DRUGS (3)
  1. CRESTOR [Suspect]
     Indication: LIPIDS ABNORMAL
     Dosage: 10 MG QD PO
     Route: 048
     Dates: start: 20040801
  2. PROTIUM [Concomitant]
  3. LOSARTAN POTASSIUM [Concomitant]

REACTIONS (3)
  - DRY MOUTH [None]
  - HANGOVER [None]
  - HEADACHE [None]
